FAERS Safety Report 16396248 (Version 2)
Quarter: 2019Q2

REPORT INFORMATION
  Report Type: Spontaneous
  Country: US (occurrence: US)
  Receive Date: 20190605
  Receipt Date: 20190607
  Transmission Date: 20190711
  Serious: No
  Sender: FDA-Public Use
  Company Number: US-009507513-1906USA001505

PATIENT
  Age: 21 Year
  Sex: Female
  Weight: 70.76 kg

DRUGS (1)
  1. NEXPLANON [Suspect]
     Active Substance: ETONOGESTREL
     Dosage: 1 ROD
     Route: 059
     Dates: start: 20160628, end: 20190604

REACTIONS (2)
  - No adverse event [Unknown]
  - Device breakage [Recovered/Resolved]
